FAERS Safety Report 8046443-9 (Version None)
Quarter: 2012Q1

REPORT INFORMATION
  Report Type: 
  Country: None (occurrence: None)
  Receive Date: 20120113
  Receipt Date: 20120109
  Transmission Date: 20120608
  Serious: Yes (Other)
  Sender: FDA-Public Use
  Company Number: US-US-EMD SERONO, INC.-7066589

PATIENT
  Sex: Female

DRUGS (13)
  1. LASIX [Concomitant]
     Indication: FLUID RETENTION
     Dates: start: 20060101, end: 20110501
  2. VALIUM [Concomitant]
  3. REBIF [Suspect]
     Indication: MULTIPLE SCLEROSIS
  4. ZIAC [Concomitant]
     Indication: HYPERTENSION
     Dates: start: 20060101
  5. PRISTIQ [Concomitant]
     Indication: DEPRESSION
  6. CRESTOR [Concomitant]
  7. AVAPRO [Concomitant]
  8. ZANAFLEX [Concomitant]
     Indication: MULTIPLE SCLEROSIS
  9. CLONIDINE [Concomitant]
  10. REBIF [Suspect]
     Route: 058
     Dates: start: 20100907
  11. HIGH BLOOD PRESSURE MEDICATIONS [Suspect]
     Indication: HYPERTENSION
  12. LASIX [Concomitant]
     Dates: start: 20110501
  13. PREVACID [Concomitant]

REACTIONS (3)
  - MULTIPLE SCLEROSIS RELAPSE [None]
  - INFECTION [None]
  - RENAL DISORDER [None]
